FAERS Safety Report 7657351-7 (Version None)
Quarter: 2011Q3

REPORT INFORMATION
  Report Type: 
  Country: None (occurrence: None)
  Receive Date: 20110804
  Receipt Date: 20110728
  Transmission Date: 20111222
  Serious: Yes (Other)
  Sender: FDA-Public Use
  Company Number: PHHY2011IE68383

PATIENT
  Age: 45 Year
  Sex: Female

DRUGS (1)
  1. CLOZAPINE [Suspect]
     Dosage: 50 MG, BD
     Route: 048

REACTIONS (1)
  - NON-HODGKIN'S LYMPHOMA [None]
